FAERS Safety Report 24931785 (Version 1)
Quarter: 2025Q1

REPORT INFORMATION
  Report Type: Report from Study
  Country: US (occurrence: US)
  Receive Date: 20250205
  Receipt Date: 20250205
  Transmission Date: 20250409
  Serious: No
  Sender: EXELIXIS
  Company Number: US-EXELIXIS-CABO-24078759

PATIENT
  Sex: Female

DRUGS (15)
  1. CABOMETYX [Suspect]
     Active Substance: CABOZANTINIB S-MALATE
     Indication: Renal cell carcinoma
     Dosage: 40 MG, QD
     Dates: start: 20240501
  2. ZOMETA [Concomitant]
     Active Substance: ZOLEDRONIC ACID
  3. WARFARIN [Concomitant]
     Active Substance: WARFARIN
  4. CRESTOR [Concomitant]
     Active Substance: ROSUVASTATIN CALCIUM
  5. AMLODIPINE [Concomitant]
     Active Substance: AMLODIPINE BESYLATE
  6. CALTRATE [Concomitant]
     Active Substance: CALCIUM CARBONATE
  7. LEVOTHYROXINE [Concomitant]
     Active Substance: LEVOTHYROXINE
  8. VITAMIN D [Concomitant]
     Active Substance: VITAMIN D NOS
  9. VITAMIN C [Concomitant]
     Active Substance: ASCORBIC ACID
  10. TYLENOL [Concomitant]
     Active Substance: ACETAMINOPHEN
  11. MIRALAX [Concomitant]
     Active Substance: POLYETHYLENE GLYCOL 3350
  12. MELATONIN [Concomitant]
     Active Substance: MELATONIN
  13. ONDANSETRON [Concomitant]
     Active Substance: ONDANSETRON
  14. CYANOCOBALAMIN\FOLIC ACID [Concomitant]
     Active Substance: CYANOCOBALAMIN\FOLIC ACID
  15. LOVENOX [Concomitant]
     Active Substance: ENOXAPARIN SODIUM

REACTIONS (4)
  - Tongue discomfort [Unknown]
  - Mouth ulceration [Recovered/Resolved]
  - Fatigue [Unknown]
  - Dry mouth [Unknown]
